FAERS Safety Report 5226515-4 (Version None)
Quarter: 2007Q1

REPORT INFORMATION
  Report Type: 
  Country: None (occurrence: None)
  Receive Date: 20061201
  Receipt Date: 20061019
  Transmission Date: 20070707
  Serious: No
  Sender: FDA-Public Use
  Company Number: US200610003782

PATIENT
  Sex: Female

DRUGS (1)
  1. CYMBALTA [Suspect]
     Indication: DEPRESSION
     Dosage: 60 MG
     Dates: start: 20060201

REACTIONS (3)
  - HYPERHIDROSIS [None]
  - MUSCLE SPASTICITY [None]
  - PAIN IN EXTREMITY [None]
